FAERS Safety Report 11218034 (Version 1)
Quarter: 2015Q2

REPORT INFORMATION
  Report Type: Spontaneous
  Country: FR (occurrence: FR)
  Receive Date: 20150625
  Receipt Date: 20150625
  Transmission Date: 20150821
  Serious: Yes (Hospitalization)
  Sender: FDA-Public Use
  Company Number: FR-WATSON-2015-12681

PATIENT
  Age: 52 Year
  Sex: Male

DRUGS (2)
  1. DELURSAN [Suspect]
     Active Substance: URSODIOL
     Indication: HEPATITIS
     Dosage: 800 MG, DAILY
     Route: 048
     Dates: start: 20150202, end: 201503
  2. CLAMOXYL                           /00249601/ [Suspect]
     Active Substance: AMOXICILLIN\CLAVULANIC ACID
     Indication: HEPATITIS
     Dosage: 3 G, DAILY
     Route: 048
     Dates: start: 20150213, end: 20150223

REACTIONS (1)
  - Bone marrow failure [Unknown]

NARRATIVE: CASE EVENT DATE: 201503
